FAERS Safety Report 12584039 (Version 1)
Quarter: 2016Q3

REPORT INFORMATION
  Report Type: Spontaneous
  Country: FR (occurrence: FR)
  Receive Date: 20160722
  Receipt Date: 20160722
  Transmission Date: 20161109
  Serious: Yes (Other)
  Sender: FDA-Public Use
  Company Number: FR-MYLANLABS-2016M1030081

PATIENT

DRUGS (11)
  1. ARIPIPRAZOLE. [Concomitant]
     Active Substance: ARIPIPRAZOLE
     Indication: SCHIZOPHRENIA
     Dosage: 10 MG/D
     Route: 065
  2. TROPATEPINE [Concomitant]
     Active Substance: TROPATEPINE
     Indication: EXTRAPYRAMIDAL DISORDER
     Dosage: 30 MG/D
     Route: 065
  3. HEPTAMINOL [Concomitant]
     Active Substance: HEPTAMINOL
     Indication: ORTHOSTATIC HYPOTENSION
     Dosage: 563.4 MG/D
     Route: 065
  4. ZOPICLONE [Concomitant]
     Active Substance: ZOPICLONE
     Indication: SCHIZOPHRENIA
     Dosage: 7.5 MG/DAY, AS NEEDED
     Route: 065
  5. LORAZEPAM. [Concomitant]
     Active Substance: LORAZEPAM
     Indication: SCHIZOPHRENIA
     Dosage: 7.5 MG/D
     Route: 065
  6. PARACETAMOL [Concomitant]
     Active Substance: ACETAMINOPHEN
     Indication: HEADACHE
     Dosage: 3 TO 4 G/D
     Route: 065
  7. NEFOPAM [Concomitant]
     Active Substance: NEFOPAM
     Indication: HAEMORRHOIDS
     Dosage: 20 MG/D
     Route: 048
  8. POLYETHYLENE GLYCOL [Concomitant]
     Active Substance: POLYETHYLENE GLYCOLS
     Indication: CONSTIPATION
     Dosage: 30 G/D
     Route: 065
  9. CLOZAPINE. [Suspect]
     Active Substance: CLOZAPINE
     Indication: SCHIZOPHRENIA
     Dosage: GRADUALLY INCREASED TO 275 MG/D (AT THE END OF 1 MONTH)
     Route: 065
  10. CLOZAPINE. [Suspect]
     Active Substance: CLOZAPINE
     Dosage: 350 MG/D
     Route: 065
  11. TROPATEPINE [Concomitant]
     Active Substance: TROPATEPINE
     Indication: SCHIZOPHRENIA
     Dosage: 15 MG/DAY
     Route: 065

REACTIONS (1)
  - Oesophagitis [Recovered/Resolved]
